FAERS Safety Report 18120873 (Version 2)
Quarter: 2021Q1

REPORT INFORMATION
  Report Type: Report from Study
  Country: GT (occurrence: GT)
  Receive Date: 20200806
  Receipt Date: 20210316
  Transmission Date: 20210419
  Serious: Yes (Other)
  Sender: FDA-Public Use
  Company Number: NVSC2020GT217028

PATIENT
  Age: 40 Year
  Sex: Male

DRUGS (2)
  1. GALVUS MET [Suspect]
     Active Substance: METFORMIN HYDROCHLORIDE\VILDAGLIPTIN
     Dosage: UNK (STARTED BY THE END OF 2019 AND STOPPED BY THE ENF OF 2020)
     Route: 065
  2. GALVUS MET [Suspect]
     Active Substance: METFORMIN HYDROCHLORIDE\VILDAGLIPTIN
     Indication: DIABETES MELLITUS
     Dosage: 1 DF, QD (50 MG VILDAGLIPTIN /850 MG METFORMIN HYDROCHLORIDE)
     Route: 065

REACTIONS (3)
  - Irritability [Unknown]
  - Blindness [Unknown]
  - Memory impairment [Unknown]
